FAERS Safety Report 10217597 (Version 1)
Quarter: 2014Q2

REPORT INFORMATION
  Report Type: Spontaneous
  Country: US (occurrence: US)
  Receive Date: 20140604
  Receipt Date: 20140604
  Transmission Date: 20141212
  Serious: Yes (Other)
  Sender: FDA-Public Use
  Company Number: US-GILEAD-2014-0104173

PATIENT
  Sex: Male

DRUGS (3)
  1. LETAIRIS [Suspect]
     Indication: PRODUCT USED FOR UNKNOWN INDICATION
     Dosage: 5 MG, QD
     Route: 065
     Dates: start: 20140207
  2. ADCIRCA [Concomitant]
  3. OXYGEN [Concomitant]

REACTIONS (9)
  - Cardiac arrest [Unknown]
  - Respiratory arrest [Unknown]
  - Loss of consciousness [Unknown]
  - Loss of consciousness [Unknown]
  - Upper limb fracture [Unknown]
  - Syncope [Unknown]
  - Dyspnoea exertional [Unknown]
  - Excoriation [Unknown]
  - Oxygen consumption increased [Unknown]
